FAERS Safety Report 17167604 (Version 2)
Quarter: 2020Q1

REPORT INFORMATION
  Report Type: Report from Study
  Country: US (occurrence: US)
  Receive Date: 20191217
  Receipt Date: 20200213
  Transmission Date: 20200409
  Serious: Yes (Other)
  Sender: FDA-Public Use
  Company Number: US-ROCHE-2499020

PATIENT
  Age: 63 Year
  Sex: Female
  Weight: 55.7 kg

DRUGS (4)
  1. SEPTRA [Concomitant]
     Active Substance: SULFAMETHOXAZOLE\TRIMETHOPRIM
  2. OBINUTUZUMAB. [Suspect]
     Active Substance: OBINUTUZUMAB
     Indication: CHRONIC LYMPHOCYTIC LEUKAEMIA
     Dosage: 100 MG IV ON DAY 1, CYCLE 1 900 MG IV ON DAY 2, CYCLE 1 1000 MG IV ON DAY 8, CYCLE 1 1000 MG IV ON D
     Route: 042
     Dates: start: 20190819
  3. VENETOCLAX. [Suspect]
     Active Substance: VENETOCLAX
     Indication: CHRONIC LYMPHOCYTIC LEUKAEMIA
     Dosage: SHE RECEIVED ORAL VENETOCLAX 20 MG EVERYDAY FOR DAYS 1-7 CYCLE 3, 50 MG PO QD DAYS 8-14, CYCLE 3, 10
     Route: 048
     Dates: start: 20191015
  4. IBRUTINIB [Suspect]
     Active Substance: IBRUTINIB
     Indication: CHRONIC LYMPHOCYTIC LEUKAEMIA
     Dosage: ON 09/DEC/2019, SHE RECEIVED LAST DOSE OF ORAL IBRUTINIB PRIOR TO THE ONSET OF ADVERSE EVENT
     Route: 048
     Dates: start: 20190819

REACTIONS (2)
  - White blood cell count decreased [Recovered/Resolved]
  - Neutrophil count decreased [Not Recovered/Not Resolved]

NARRATIVE: CASE EVENT DATE: 20191209
